FAERS Safety Report 21408197 (Version 1)
Quarter: 2022Q4

REPORT INFORMATION
  Report Type: Report from Study
  Country: FR (occurrence: FR)
  Receive Date: 20221004
  Receipt Date: 20221004
  Transmission Date: 20230113
  Serious: Yes (Life-Threatening)
  Sender: FDA-Public Use
  Company Number: FR-NORDICGR-2022003286

PATIENT
  Age: 69 Year
  Sex: Male
  Weight: 80 kg

DRUGS (7)
  1. TRASYLOL [Suspect]
     Active Substance: APROTININ
     Indication: Aortic dissection
     Dosage: 325 MILLILITRE TOTAL LOADING DOSE 1 MILLION KIU PUMP PRIMING DOSE 1 M KIU CONTINUOUS INFUSION DOSE 1
     Route: 042
     Dates: start: 20190618, end: 20190618
  2. HEPARIN [Concomitant]
     Active Substance: HEPARIN SODIUM
     Dosage: 29 KILO-INTERNATIONAL UNIT TOTAL DURING SURGERY
     Dates: start: 20190618, end: 20190618
  3. HUMAN RED BLOOD CELL [Concomitant]
     Active Substance: HUMAN RED BLOOD CELL
     Dosage: 3477 MILLILITRE INTRAOPERATIVELY AND UP TO 48 HOURS AFTER SURGERY
     Dates: start: 20190618
  4. PLATELETS [Concomitant]
     Active Substance: HUMAN PLATELET, ALLOGENIC
     Dosage: 1313 MILLILITRE INTRAOPERATIVELY AND UP TO 48 HOURS AFTER SURGERY
     Dates: start: 20190618
  5. FRESH FROZEN PLASMA [Concomitant]
     Active Substance: HUMAN PLASMA
     Indication: Transfusion
     Dosage: 4567 MILLILITRE INTRAOPERATIVELY AND UP TO 48 HOURS AFTER SURGERY
     Route: 042
     Dates: start: 20190618
  6. PROTHROMBIN COMPLEX CONCENTRATE NOS [Concomitant]
     Active Substance: COAGULATION FACTOR IX HUMAN\COAGULATION FACTOR VII HUMAN\COAGULATION FACTOR X HUMAN\PROTHROMBIN
     Indication: Transfusion
     Dosage: 2000 MILLILITRE INTRAOPERATIVELY AND UP TO 48 HOURS AFTER SURGERY
     Route: 042
     Dates: start: 20190618
  7. FIBRINOGEN [Concomitant]
     Active Substance: FIBRINOGEN HUMAN
     Indication: Transfusion
     Dosage: 10 GRAM INTRAOPERATIVELY AND UP TO 48 HOURS AFTER SURGERY
     Route: 042

REACTIONS (4)
  - Arterial thrombosis [Recovered/Resolved with Sequelae]
  - Pulmonary embolism [Recovered/Resolved]
  - Product use in unapproved indication [Unknown]
  - Off label use [Unknown]

NARRATIVE: CASE EVENT DATE: 20190618
